FAERS Safety Report 10755385 (Version 1)
Quarter: 2015Q1

REPORT INFORMATION
  Report Type: Spontaneous
  Country: US (occurrence: None)
  Receive Date: 20150123
  Receipt Date: 20150123
  Transmission Date: 20150721
  Serious: Yes (Hospitalization)
  Sender: FDA-Public Use
  Company Number: TPA2013A04680

PATIENT
  Sex: Male

DRUGS (1)
  1. COLCHICINE (COLCHICINE) [Suspect]
     Active Substance: COLCHICINE
     Indication: GOUT
     Route: 048

REACTIONS (1)
  - Gout [None]
